FAERS Safety Report 21187586 (Version 1)
Quarter: 2022Q3

REPORT INFORMATION
  Report Type: Spontaneous
  Country: US (occurrence: US)
  Receive Date: 20220808
  Receipt Date: 20220808
  Transmission Date: 20221027
  Serious: Yes (Death, Hospitalization, Other)
  Sender: FDA-Public Use
  Company Number: US-ALVOGEN-2022-ALVOGEN-120730

PATIENT
  Age: 73 Year
  Sex: Male

DRUGS (3)
  1. MINOCYCLINE [Suspect]
     Active Substance: MINOCYCLINE HYDROCHLORIDE
     Indication: Pneumonia bacterial
  2. MEROPENEM [Suspect]
     Active Substance: MEROPENEM
     Indication: Pneumonia bacterial
  3. CIPROFLOXACIN [Suspect]
     Active Substance: CIPROFLOXACIN
     Indication: Pneumonia bacterial

REACTIONS (3)
  - Pancytopenia [Fatal]
  - Drug reaction with eosinophilia and systemic symptoms [Fatal]
  - Drug ineffective [Fatal]
